FAERS Safety Report 15578515 (Version 1)
Quarter: 2018Q4

REPORT INFORMATION
  Report Type: Spontaneous
  Country: US (occurrence: US)
  Receive Date: 20181102
  Receipt Date: 20181102
  Transmission Date: 20190205
  Serious: No
  Sender: FDA-Public Use
  Company Number: US-LUPIN PHARMACEUTICALS INC.-2018-04910

PATIENT
  Age: 64 Year
  Sex: Female

DRUGS (2)
  1. CEFTRIAXONE FOR INJECTION USP, 2 G [Suspect]
     Active Substance: CEFTRIAXONE
     Indication: LYME DISEASE
     Dosage: 2 GM, UNK
     Route: 030
     Dates: start: 20180504
  2. CEFTRIAXONE FOR INJECTION USP, 2 G [Suspect]
     Active Substance: CEFTRIAXONE
     Dosage: 2 GM, UNK
     Route: 030
     Dates: start: 20180523

REACTIONS (3)
  - Product use in unapproved indication [Unknown]
  - Urticaria [Recovered/Resolved]
  - Rash [Recovered/Resolved]

NARRATIVE: CASE EVENT DATE: 20180504
